FAERS Safety Report 6861449-0 (Version None)
Quarter: 2010Q3

REPORT INFORMATION
  Report Type: 
  Country: None (occurrence: None)
  Receive Date: 20100715
  Receipt Date: 20100630
  Transmission Date: 20110219
  Serious: Yes (Other)
  Sender: FDA-Public Use
  Company Number: 1000015014

PATIENT
  Age: 59 Year
  Sex: Female

DRUGS (4)
  1. ESCITALOPRAM [Suspect]
     Indication: DEPRESSION
     Dosage: 10 MG (10 MG, 1 IN 1 D), ORAL
     Route: 048
     Dates: end: 20100630
  2. TYLENOL W/ CODEINE [Suspect]
     Indication: PAIN
     Dosage: (1 DOSAGE FORMS), ORAL
     Route: 048
     Dates: start: 20100630, end: 20100630
  3. CLONAZEPAM [Concomitant]
  4. PAXIL [Concomitant]

REACTIONS (4)
  - DRUG INTERACTION [None]
  - HYPERTONIA [None]
  - MUSCLE SPASMS [None]
  - PAIN [None]
